FAERS Safety Report 19672934 (Version 3)
Quarter: 2022Q2

REPORT INFORMATION
  Report Type: Report from Study
  Country: US (occurrence: US)
  Receive Date: 20210809
  Receipt Date: 20220610
  Transmission Date: 20220721
  Serious: Yes (Hospitalization)
  Sender: FDA-Public Use
  Company Number: US-NOVARTISTESTPH-NVSC2021US173759

PATIENT
  Sex: Female
  Weight: 88.435 kg

DRUGS (3)
  1. TREPROSTINIL [Suspect]
     Active Substance: TREPROSTINIL
     Indication: Pulmonary arterial hypertension
     Dosage: 121 NG/KG/MIN, CONT
     Route: 058
     Dates: start: 20210608
  2. TREPROSTINIL [Suspect]
     Active Substance: TREPROSTINIL
     Dosage: 121 NG/KG/MIN, CONT
     Route: 058
  3. OPSUMIT [Concomitant]
     Active Substance: MACITENTAN
     Indication: Product used for unknown indication
     Dosage: UNK
     Route: 065

REACTIONS (5)
  - Pneumonia [Unknown]
  - Cough [Unknown]
  - Device issue [Unknown]
  - Incorrect dose administered [Unknown]
  - Dyspnoea [Unknown]
